FAERS Safety Report 17482217 (Version 1)
Quarter: 2020Q1

REPORT INFORMATION
  Report Type: Spontaneous
  Country: US (occurrence: US)
  Receive Date: 20200302
  Receipt Date: 20200302
  Transmission Date: 20200409
  Serious: No
  Sender: FDA-Public Use
  Company Number: US-BAYER-2020-035667

PATIENT

DRUGS (1)
  1. ALEVE BACK AND MUSCLE PAIN [Suspect]
     Active Substance: NAPROXEN SODIUM
     Indication: BACK PAIN

REACTIONS (6)
  - Lichen planus [Recovered/Resolved]
  - Abdominal pain upper [Unknown]
  - Blister [Recovered/Resolved]
  - Heart rate abnormal [Unknown]
  - Blood pressure fluctuation [Unknown]
  - Pruritus [Recovered/Resolved]
